FAERS Safety Report 18577569 (Version 1)
Quarter: 2020Q4

REPORT INFORMATION
  Report Type: Other
  Country: FR (occurrence: FR)
  Receive Date: 20201204
  Receipt Date: 20201204
  Transmission Date: 20210114
  Serious: Yes (Other)
  Sender: FDA-Public Use
  Company Number: FR-ROCHE-2724866

PATIENT

DRUGS (1)
  1. RITUXIMAB. [Suspect]
     Active Substance: RITUXIMAB
     Indication: LINEAR IGA DISEASE
     Route: 065

REACTIONS (3)
  - Infection [Unknown]
  - Off label use [Unknown]
  - Intentional product use issue [Unknown]
